FAERS Safety Report 6558234-6 (Version None)
Quarter: 2010Q1

REPORT INFORMATION
  Report Type: 
  Country: None (occurrence: None)
  Receive Date: 20100127
  Receipt Date: 20100127
  Transmission Date: 20100710
  Serious: Yes (Hospitalization)
  Sender: FDA-Public Use
  Company Number: None

PATIENT
  Age: 80 Year
  Sex: Female
  Weight: 93.8 kg

DRUGS (15)
  1. COUMADIN [Suspect]
     Indication: CORONARY ARTERY DISEASE
     Dosage: 2 MG DAILY PO, CHRONIC
     Route: 048
  2. ASPIRIN [Suspect]
     Indication: CORONARY ARTERY DISEASE
     Dosage: 81 MG QAM PO, CHRONIC
     Route: 048
  3. LASIX [Concomitant]
  4. NTG SL [Concomitant]
  5. LEVOTHYROXINE SODIUM [Concomitant]
  6. ZETIA [Concomitant]
  7. CRESTOR [Concomitant]
  8. LUMIGAN [Concomitant]
  9. TOPROL-XL [Concomitant]
  10. RAMIPRIL [Concomitant]
  11. AMLODIPINE [Concomitant]
  12. PREMARIN [Concomitant]
  13. POLYCARBOPRIL [Concomitant]
  14. CALCIUM [Concomitant]
  15. M.V.I. [Concomitant]

REACTIONS (3)
  - HYPERKALAEMIA [None]
  - OESOPHAGEAL ULCER [None]
  - RENAL FAILURE ACUTE [None]
